FAERS Safety Report 4422765-5 (Version None)
Quarter: 2004Q3

REPORT INFORMATION
  Report Type: 
  Country: None (occurrence: None)
  Receive Date: 20040713
  Receipt Date: 20031124
  Transmission Date: 20050211
  Serious: No
  Sender: FDA-Public Use
  Company Number: PHEH2003US07764

PATIENT
  Age: 1 Year
  Sex: Female
  Weight: 10.4 kg

DRUGS (1)
  1. ELIDEL [Suspect]
     Dosage: PRN, TOPICAL
     Route: 061
     Dates: start: 20030825

REACTIONS (1)
  - APPLICATION SITE PIGMENTATION CHANGES [None]
